FAERS Safety Report 7535840-3 (Version None)
Quarter: 2011Q2

REPORT INFORMATION
  Report Type: 
  Country: None (occurrence: None)
  Receive Date: 20110602
  Receipt Date: 20110517
  Transmission Date: 20111010
  Serious: Yes (Death, Life-Threatening, Hospitalization)
  Sender: FDA-Public Use
  Company Number: GER/USA/11/0018481

PATIENT
  Age: 19 Year
  Sex: Male

DRUGS (1)
  1. LAMOTRIGINE [Suspect]
     Indication: PRODUCT USED FOR UNKNOWN INDICATION
     Dosage: ORAL
     Route: 048

REACTIONS (20)
  - PALLOR [None]
  - GRAND MAL CONVULSION [None]
  - DISSEMINATED INTRAVASCULAR COAGULATION [None]
  - MENTAL STATUS CHANGES [None]
  - TREMOR [None]
  - DEPRESSION [None]
  - ENCEPHALOPATHY [None]
  - ATRIOVENTRICULAR BLOCK COMPLETE [None]
  - ELECTROCARDIOGRAM QRS COMPLEX PROLONGED [None]
  - TOXICITY TO VARIOUS AGENTS [None]
  - INTENTIONAL OVERDOSE [None]
  - BLOOD POTASSIUM DECREASED [None]
  - RHABDOMYOLYSIS [None]
  - PNEUMONIA KLEBSIELLA [None]
  - RESPIRATORY ARREST [None]
  - TACHYCARDIA [None]
  - RESPIRATORY ACIDOSIS [None]
  - METABOLIC ACIDOSIS [None]
  - PNEUMONIA STAPHYLOCOCCAL [None]
  - ASPIRATION [None]
